FAERS Safety Report 6834585-2 (Version None)
Quarter: 2010Q3

REPORT INFORMATION
  Report Type: 
  Country: None (occurrence: None)
  Receive Date: 20100712
  Receipt Date: 20070524
  Transmission Date: 20110219
  Serious: No
  Sender: FDA-Public Use
  Company Number: US-PFIZER INC-2007025090

PATIENT
  Sex: Male
  Weight: 113.4 kg

DRUGS (5)
  1. CHANTIX [Suspect]
     Indication: SMOKING CESSATION THERAPY
     Dates: start: 20070309
  2. KLONOPIN [Concomitant]
  3. STRATTERA [Concomitant]
     Indication: ATTENTION DEFICIT/HYPERACTIVITY DISORDER
  4. LEXAPRO [Concomitant]
  5. DIET FORMULATIONS FOR TREATMENT OF OBESITY [Concomitant]
     Indication: WEIGHT DECREASED

REACTIONS (1)
  - DRUG INEFFECTIVE [None]
